FAERS Safety Report 16624834 (Version 1)
Quarter: 2019Q3

REPORT INFORMATION
  Report Type: Spontaneous
  Country: CA (occurrence: CA)
  Receive Date: 20190724
  Receipt Date: 20190724
  Transmission Date: 20191004
  Serious: Yes (Disabling, Other)
  Sender: FDA-Public Use
  Company Number: CA-PFIZER INC-2019311995

PATIENT
  Age: 44 Year
  Sex: Female
  Weight: 68.27 kg

DRUGS (4)
  1. DEPO-PROVERA [Suspect]
     Active Substance: MEDROXYPROGESTERONE ACETATE
     Indication: CONTRACEPTION
     Dosage: 150 MG, UNK (1 EVERY 10 WEEK(S))
     Route: 042
  2. DEPO-PROVERA [Suspect]
     Active Substance: MEDROXYPROGESTERONE ACETATE
     Dosage: 150 MG, UNK (1 EVERY 3 WEEK(S))
     Route: 042
  3. IRON [Concomitant]
     Active Substance: IRON
     Dosage: UNK
  4. MATERNA [ASCORBIC ACID;CALCIUM CARBONATE;COLECALCIFEROL;CUPRIC OXIDE;C [Concomitant]
     Dosage: UNK

REACTIONS (2)
  - Dermal cyst [Recovering/Resolving]
  - Skin lesion [Recovering/Resolving]
